FAERS Safety Report 10333795 (Version 3)
Quarter: 2014Q3

REPORT INFORMATION
  Report Type: Spontaneous
  Country: GB (occurrence: GB)
  Receive Date: 20140723
  Receipt Date: 20140730
  Transmission Date: 20150326
  Serious: Yes (Other)
  Sender: FDA-Public Use
  Company Number: GB-RANBAXY-2014RR-83650

PATIENT
  Age: 43 Year
  Sex: Male

DRUGS (8)
  1. LYRICA [Suspect]
     Active Substance: PREGABALIN
     Indication: PAIN
     Dosage: 25 MG, UNK
     Route: 065
     Dates: start: 201211
  2. CODEINE [Suspect]
     Active Substance: CODEINE
     Indication: PAIN
     Dosage: UNK
     Route: 065
  3. LYRICA [Suspect]
     Active Substance: PREGABALIN
     Dosage: 450 MG, QID
     Route: 065
     Dates: start: 20140701
  4. PARACETAMOL [Concomitant]
     Active Substance: ACETAMINOPHEN
     Indication: PAIN
     Dosage: UNK
     Route: 065
  5. LYRICA [Suspect]
     Active Substance: PREGABALIN
     Indication: ANXIETY
     Dosage: 300 MG, TWO TIMES A DAY
     Route: 065
  6. TRAMADOL [Suspect]
     Active Substance: TRAMADOL
     Indication: PAIN
     Dosage: UNK
     Route: 065
  7. COCODAMOL [Suspect]
     Active Substance: ACETAMINOPHEN\CODEINE PHOSPHATE
     Indication: PRODUCT USED FOR UNKNOWN INDICATION
     Dosage: UNK
     Route: 065
  8. LYRICA [Suspect]
     Active Substance: PREGABALIN
     Indication: PRODUCT USED FOR UNKNOWN INDICATION
     Dosage: 150 MG, QID
     Route: 065
     Dates: start: 201302

REACTIONS (36)
  - Musculoskeletal pain [Unknown]
  - Myalgia [Unknown]
  - Suicide attempt [Unknown]
  - Influenza like illness [Unknown]
  - Nervousness [Unknown]
  - Disinhibition [Unknown]
  - Somnolence [Recovered/Resolved]
  - Intentional overdose [Unknown]
  - Bipolar I disorder [Unknown]
  - Feeling abnormal [Recovered/Resolved]
  - Chest pain [Unknown]
  - Confusional state [Recovered/Resolved]
  - Paranoia [Unknown]
  - Euphoric mood [Unknown]
  - Anxiety [Unknown]
  - Drug dependence [Unknown]
  - Disease progression [Unknown]
  - Hypotonia [Unknown]
  - Therapeutic response changed [Unknown]
  - Mania [Unknown]
  - Fatigue [Unknown]
  - Pre-existing condition improved [Unknown]
  - Mania [Recovered/Resolved]
  - Mental impairment [Recovered/Resolved]
  - Drug withdrawal syndrome [Unknown]
  - Disturbance in attention [Unknown]
  - Memory impairment [Recovered/Resolved]
  - Malaise [Unknown]
  - Asthenia [Unknown]
  - Impulsive behaviour [Unknown]
  - Psychomotor hyperactivity [Unknown]
  - Drug ineffective [Unknown]
  - Insomnia [Unknown]
  - Hyperhidrosis [Unknown]
  - Gait disturbance [Unknown]
  - Activities of daily living impaired [Unknown]

NARRATIVE: CASE EVENT DATE: 20140701
